FAERS Safety Report 25176976 (Version 7)
Quarter: 2025Q3

REPORT INFORMATION
  Report Type: Report from Study
  Country: US (occurrence: US)
  Receive Date: 20250409
  Receipt Date: 20250908
  Transmission Date: 20251020
  Serious: Yes (Other)
  Sender: SUNOVION
  Company Number: US-SUMITOMO PHARMA SWITZERLAND GMBH-2025SPA003323

PATIENT
  Age: 69 Year
  Sex: Male

DRUGS (2)
  1. ORGOVYX [Suspect]
     Active Substance: RELUGOLIX
     Indication: Prostate cancer
     Dosage: 120 MG, QD
     Route: 048
     Dates: start: 20250305
  2. BEANO [Concomitant]
     Active Substance: ASPERGILLUS NIGER .ALPHA.-GALACTOSIDASE

REACTIONS (14)
  - Immunosuppression [Unknown]
  - Hernia [Unknown]
  - Skin infection [Unknown]
  - White blood cell count abnormal [Unknown]
  - Pain [Unknown]
  - Throat irritation [Unknown]
  - Pollakiuria [Unknown]
  - Ear pain [Unknown]
  - Pain in extremity [Unknown]
  - Asthenia [Unknown]
  - Fatigue [Unknown]
  - Diarrhoea [Unknown]
  - Hot flush [Unknown]
  - Incorrect dose administered [Recovered/Resolved]
